FAERS Safety Report 11318220 (Version 2)
Quarter: 2015Q3

REPORT INFORMATION
  Report Type: Report from Study
  Country: FR (occurrence: FR)
  Receive Date: 20150728
  Receipt Date: 20150819
  Transmission Date: 20151125
  Serious: Yes (Hospitalization, Other)
  Sender: FDA-Public Use
  Company Number: PHHY2014FR067879

PATIENT
  Age: 67 Year
  Sex: Female

DRUGS (6)
  1. ICL670A [Suspect]
     Active Substance: DEFERASIROX
     Dosage: 500 MG, QD
     Route: 065
     Dates: start: 201405, end: 201411
  2. ICL670A [Suspect]
     Active Substance: DEFERASIROX
     Indication: MYELODYSPLASTIC SYNDROME
     Dosage: 500 MG, QD
     Route: 048
     Dates: start: 20140114, end: 20140121
  3. ICL670A [Suspect]
     Active Substance: DEFERASIROX
     Dosage: 1500 MG, QD
     Route: 048
     Dates: start: 20140514, end: 201405
  4. ICL670A [Suspect]
     Active Substance: DEFERASIROX
     Indication: REFRACTORY CYTOPENIA WITH MULTILINEAGE DYSPLASIA
     Dosage: 1000 MG, QD
     Route: 048
     Dates: start: 20140122
  5. ICL670A [Suspect]
     Active Substance: DEFERASIROX
     Dosage: 1000 MG, QD
     Route: 048
     Dates: start: 20140416
  6. ICL670A [Suspect]
     Active Substance: DEFERASIROX
     Dosage: 500 MG, QD
     Route: 048
     Dates: start: 20140205, end: 20140313

REACTIONS (13)
  - Dysphagia [Recovered/Resolved]
  - Haemoglobin decreased [Unknown]
  - Dyspepsia [Recovered/Resolved]
  - Mucosal inflammation [Recovered/Resolved]
  - Lymph node tuberculosis [Recovered/Resolved]
  - Fungal oesophagitis [Recovered/Resolved]
  - Pain [Recovered/Resolved]
  - Erythema [Recovered/Resolved]
  - Nausea [Recovered/Resolved]
  - General physical health deterioration [Not Recovered/Not Resolved]
  - Herpes zoster [Recovered/Resolved]
  - Abdominal pain upper [Recovered/Resolved]
  - Diarrhoea [Recovered/Resolved]

NARRATIVE: CASE EVENT DATE: 201401
